FAERS Safety Report 5329488-9 (Version None)
Quarter: 2007Q1

REPORT INFORMATION
  Report Type: 
  Country: None (occurrence: None)
  Receive Date: 20070221
  Receipt Date: 20060406
  Transmission Date: 20070707
  Serious: Yes (Hospitalization)
  Sender: FDA-Public Use
  Company Number: BDI-008073

PATIENT
  Age: 56 Year
  Sex: Male
  Weight: 79.55 kg

DRUGS (2)
  1. ISOVUE-M 200 [Suspect]
     Indication: LUMBAR SPINAL STENOSIS
     Dosage: IT
     Route: 038
     Dates: start: 20060222, end: 20060222
  2. ISOVUE-M 200 [Suspect]
     Indication: SPINAL MYELOGRAM
     Dosage: IT
     Route: 038
     Dates: start: 20060222, end: 20060222

REACTIONS (1)
  - MENINGITIS [None]
